FAERS Safety Report 6029802-5 (Version None)
Quarter: 2009Q1

REPORT INFORMATION
  Report Type: 
  Country: None (occurrence: None)
  Receive Date: 20090107
  Receipt Date: 20090102
  Transmission Date: 20090719
  Serious: Yes (Other)
  Sender: FDA-Public Use
  Company Number: NL-ASTRAZENECA-2009AC00102

PATIENT
  Sex: Male

DRUGS (2)
  1. CRESTOR [Suspect]
     Indication: CARDIAC DISORDER
     Route: 048
  2. MORPHINE [Concomitant]
     Indication: AFFECTIVE DISORDER

REACTIONS (1)
  - TYPE 2 DIABETES MELLITUS [None]
